FAERS Safety Report 7611395-X (Version None)
Quarter: 2011Q3

REPORT INFORMATION
  Report Type: 
  Country: None (occurrence: None)
  Receive Date: 20110715
  Receipt Date: 20110706
  Transmission Date: 20111222
  Serious: Yes (Other)
  Sender: FDA-Public Use
  Company Number: JP-ROCHE-783865

PATIENT
  Sex: Male
  Weight: 75 kg

DRUGS (5)
  1. ALIMTA [Concomitant]
     Route: 041
     Dates: start: 20110413, end: 20110413
  2. LOXOPROFEN SODIUM [Concomitant]
     Dosage: DRUG: LOXOMARIN
     Route: 048
     Dates: start: 20100901
  3. OXYCONTIN [Concomitant]
     Route: 048
     Dates: start: 20100901
  4. AVASTIN [Suspect]
     Indication: LUNG ADENOCARCINOMA METASTATIC
     Route: 041
     Dates: start: 20110413, end: 20110413
  5. FOLIC ACID [Concomitant]
     Route: 048
     Dates: start: 20110407

REACTIONS (2)
  - METASTASES TO SMALL INTESTINE [None]
  - JEJUNAL PERFORATION [None]
